FAERS Safety Report 17237992 (Version 1)
Quarter: 2020Q1

REPORT INFORMATION
  Report Type: Spontaneous
  Country: US (occurrence: US)
  Receive Date: 20200106
  Receipt Date: 20200106
  Transmission Date: 20200409
  Serious: Yes (Hospitalization)
  Sender: FDA-Public Use
  Company Number: US-PACIRA-201900043

PATIENT
  Age: 78 Year
  Sex: Female
  Weight: 67.2 kg

DRUGS (4)
  1. EXPAREL [Suspect]
     Active Substance: BUPIVACAINE
     Indication: MASTECTOMY
     Dosage: 266 MG/ 20 ML, SINGLE, FREQUENCY : SINGLE
     Dates: start: 20131108, end: 20131108
  2. LIDOCAINE. [Concomitant]
     Active Substance: LIDOCAINE
     Indication: PRODUCT USED FOR UNKNOWN INDICATION
     Dosage: SMALL DOSES OF LIDOCAINE 1% AT 09:35, 08:38 PRIOR TO EXPAREL
     Route: 065
  3. BUPIVACAINE. [Concomitant]
     Active Substance: BUPIVACAINE
     Indication: PRODUCT USED FOR UNKNOWN INDICATION
     Dosage: UNK AT 07:19
     Route: 065
  4. ONDANSETRON [Concomitant]
     Active Substance: ONDANSETRON
     Indication: PRODUCT USED FOR UNKNOWN INDICATION
     Dosage: 4 MG, SINGLE PRIOR TO EXPAREL, FREQUENCY : SINGLE
     Route: 042

REACTIONS (2)
  - Atrioventricular block complete [Recovered/Resolved]
  - Atrioventricular block [Recovered/Resolved]

NARRATIVE: CASE EVENT DATE: 20131108
